FAERS Safety Report 7737114-4 (Version None)
Quarter: 2011Q3

REPORT INFORMATION
  Report Type: 
  Country: None (occurrence: None)
  Receive Date: 20110908
  Receipt Date: 20110829
  Transmission Date: 20111222
  Serious: Yes (Hospitalization)
  Sender: FDA-Public Use
  Company Number: AT-ROCHE-799584

PATIENT
  Sex: Male
  Weight: 110 kg

DRUGS (2)
  1. PEGINTERFERON ALFA-2A [Suspect]
     Dosage: LAST DOSE PRIOR TO SAE: 26 AUG 2011, PERMANENTLY DISCONTINUED
     Route: 058
     Dates: start: 20100910, end: 20110829
  2. RIBAVIRIN [Suspect]
     Dosage: LAST DOSE PRIOR TO SAE: 26 AUG 2011, FREQ: 3-0-3, PERMANENTLY DISCONTINUED
     Route: 048
     Dates: start: 20100910, end: 20110829

REACTIONS (2)
  - RENAL FAILURE [None]
  - EPILEPSY [None]
